FAERS Safety Report 7404466-4 (Version None)
Quarter: 2011Q2

REPORT INFORMATION
  Report Type: 
  Country: None (occurrence: None)
  Receive Date: 20110408
  Receipt Date: 20110406
  Transmission Date: 20111010
  Serious: Yes (Hospitalization, Other)
  Sender: FDA-Public Use
  Company Number: BR-ABBOTT-11P-020-0717310-00

PATIENT
  Sex: Female
  Weight: 60 kg

DRUGS (6)
  1. PREDNISONE [Concomitant]
     Indication: CROHN'S DISEASE
  2. HUMIRA [Suspect]
     Route: 058
  3. MIRTAZAPINE [Concomitant]
     Indication: ANTIDEPRESSANT THERAPY
  4. HUMIRA [Suspect]
     Dosage: 4 APPLICATIONS
  5. HUMIRA [Suspect]
     Indication: CROHN'S DISEASE
     Dosage: INDUCTION DOSE
     Route: 058
     Dates: start: 20100501
  6. HUMIRA [Suspect]
     Dosage: 4 APPLICATIONS
     Route: 058
     Dates: start: 20110328

REACTIONS (6)
  - COLOSTOMY [None]
  - NOSOCOMIAL INFECTION [None]
  - GASTROINTESTINAL FISTULA [None]
  - ANASTOMOTIC COMPLICATION [None]
  - ABDOMINAL INFECTION [None]
  - GASTROINTESTINAL ANASTOMOTIC LEAK [None]
